FAERS Safety Report 20421218 (Version 1)
Quarter: 2022Q1

REPORT INFORMATION
  Report Type: Spontaneous
  Country: CN (occurrence: CN)
  Receive Date: 20220203
  Receipt Date: 20220203
  Transmission Date: 20220423
  Serious: Yes (Other)
  Sender: FDA-Public Use
  Company Number: CN-BAYER-2022A014091

PATIENT
  Age: 72 Year
  Sex: Male
  Weight: 55 kg

DRUGS (1)
  1. AVELOX [Suspect]
     Active Substance: MOXIFLOXACIN HYDROCHLORIDE
     Indication: Pneumonia
     Dosage: 1 DF, QD
     Route: 048
     Dates: start: 20220121, end: 20220122

REACTIONS (8)
  - Altered state of consciousness [Recovering/Resolving]
  - Hallucination [Recovering/Resolving]
  - Dialysis related complication [None]
  - Incoherent [Recovered/Resolved]
  - Muscular weakness [Recovered/Resolved]
  - Somnolence [Recovering/Resolving]
  - Agitation [Recovering/Resolving]
  - Neurological examination abnormal [Recovering/Resolving]

NARRATIVE: CASE EVENT DATE: 20220121
